FAERS Safety Report 7457177-3 (Version None)
Quarter: 2011Q1

REPORT INFORMATION
  Report Type: 
  Country: None (occurrence: None)
  Receive Date: 20110302
  Receipt Date: 20101213
  Transmission Date: 20110831
  Serious: No
  Sender: FDA-Public Use
  Company Number: 023752

PATIENT
  Sex: Male

DRUGS (6)
  1. DILAUDID [Concomitant]
  2. MS CONTIN [Concomitant]
  3. METHOTREXATE [Concomitant]
  4. FOLIC ACID [Concomitant]
  5. NAMENDA [Concomitant]
  6. CIMZIA [Suspect]
     Indication: CROHN'S DISEASE
     Dosage: (2 INJECTION EVERY 2 WEEKS SUBCUTANEOUS)
     Route: 058
     Dates: start: 20091201

REACTIONS (6)
  - CHILLS [None]
  - PAIN [None]
  - PYREXIA [None]
  - ASTHENIA [None]
  - RESTLESSNESS [None]
  - FATIGUE [None]
